FAERS Safety Report 9106704 (Version 1)
Quarter: 2013Q1

REPORT INFORMATION
  Report Type: Spontaneous
  Country: US (occurrence: US)
  Receive Date: 20130221
  Receipt Date: 20130221
  Transmission Date: 20140127
  Serious: No
  Sender: FDA-Public Use
  Company Number: US-009507513-1302USA009929

PATIENT
  Sex: 0

DRUGS (1)
  1. CORICIDIN HBP FLU [Suspect]
     Indication: EUPHORIC MOOD
     Dosage: 8 DF, UNKNOWN
     Route: 048

REACTIONS (2)
  - Overdose [Unknown]
  - Off label use [Unknown]
